FAERS Safety Report 6803764-2 (Version None)
Quarter: 2010Q2

REPORT INFORMATION
  Report Type: 
  Country: None (occurrence: None)
  Receive Date: 20100628
  Receipt Date: 20100617
  Transmission Date: 20101027
  Serious: Yes (Hospitalization, Other)
  Sender: FDA-Public Use
  Company Number: JP-PFIZER INC-2010075591

PATIENT
  Sex: Female
  Weight: 44.6 kg

DRUGS (4)
  1. AZULFIDINE [Suspect]
     Indication: RHEUMATOID ARTHRITIS
     Route: 048
  2. RHEUMATREX [Suspect]
     Indication: RHEUMATOID ARTHRITIS
     Dosage: UNK
     Route: 048
     Dates: start: 20030623, end: 20100510
  3. RIMATIL [Suspect]
     Indication: RHEUMATOID ARTHRITIS
  4. REMICADE [Concomitant]
     Indication: RHEUMATOID ARTHRITIS
     Dosage: UNK
     Route: 042
     Dates: start: 20100219, end: 20100402

REACTIONS (3)
  - CHEST X-RAY ABNORMAL [None]
  - COUGH [None]
  - HYPERSENSITIVITY [None]
